FAERS Safety Report 9931248 (Version 2)
Quarter: 2014Q1

REPORT INFORMATION
  Report Type: Spontaneous
  Country: BR (occurrence: BR)
  Receive Date: 20140228
  Receipt Date: 20140228
  Transmission Date: 20141002
  Serious: Yes (Other)
  Sender: FDA-Public Use
  Company Number: BR-AMGEN-BRASP2014011085

PATIENT
  Age: 54 Year
  Sex: Female
  Weight: 65 kg

DRUGS (5)
  1. ENBREL [Suspect]
     Indication: ANKYLOSING SPONDYLITIS
     Dosage: 50 MG, ONCE WEEKLY
     Route: 058
     Dates: start: 20110915
  2. HYDROCHLOROTHIAZIDE [Concomitant]
     Dosage: STRENGTH 25 MG
  3. BUPROPION [Concomitant]
     Dosage: 150 MG, UNK
  4. ESCITALOPRAM [Concomitant]
     Dosage: STRENGTH 10 MG
  5. CARBOLITIUM [Concomitant]
     Dosage: 300 MG, UNK

REACTIONS (5)
  - Varicose vein [Unknown]
  - Pain in extremity [Unknown]
  - Malaise [Unknown]
  - Injection site pain [Unknown]
  - Injection site pruritus [Unknown]
